FAERS Safety Report 6501874-0 (Version None)
Quarter: 2009Q4

REPORT INFORMATION
  Report Type: 
  Country: None (occurrence: None)
  Receive Date: 20091216
  Receipt Date: 20091203
  Transmission Date: 20100525
  Serious: Yes (Disabling, Other)
  Sender: FDA-Public Use
  Company Number: PHEH2008US08054

PATIENT
  Sex: Male

DRUGS (15)
  1. ZOMETA [Suspect]
     Indication: PROPHYLAXIS
     Dosage: MONTHLY
     Dates: end: 20070601
  2. LUPRON [Concomitant]
  3. HYDROCODONE [Concomitant]
  4. PEPCID [Concomitant]
  5. CASODEX [Concomitant]
     Dosage: UNK
     Dates: end: 20060101
  6. LORAZEPAM [Concomitant]
  7. NIZORAL [Concomitant]
     Dosage: UNK
  8. POTASSIUM CITRATE [Concomitant]
     Dosage: ONE TABLET B.I.D.
  9. URISED [Concomitant]
     Dosage: UNK
  10. SEPTRA [Concomitant]
     Dosage: UNK
  11. VICODIN [Concomitant]
  12. FLONASE [Concomitant]
  13. KETOCONAZOLE [Concomitant]
     Dosage: UNK
     Dates: start: 20061001, end: 20070101
  14. PREMARIN [Concomitant]
     Dosage: UNK
     Dates: start: 20070101
  15. DURAGESIC-100 [Concomitant]
     Indication: BONE PAIN

REACTIONS (48)
  - ABDOMINAL PAIN [None]
  - ABSCESS DRAINAGE [None]
  - ANAEMIA [None]
  - ANHEDONIA [None]
  - ANXIETY [None]
  - BACK PAIN [None]
  - BILIARY CYST [None]
  - BLADDER CALCULUS REMOVAL [None]
  - BLADDER HYPERTROPHY [None]
  - BLOOD TESTOSTERONE DECREASED [None]
  - BLOOD URINE PRESENT [None]
  - BONE DISORDER [None]
  - BONE PAIN [None]
  - BREAST TENDERNESS [None]
  - CALCULUS BLADDER [None]
  - CHILLS [None]
  - COLITIS [None]
  - CONCOMITANT DISEASE PROGRESSION [None]
  - CONSTIPATION [None]
  - DYSPNOEA [None]
  - DYSURIA [None]
  - FATIGUE [None]
  - GINGIVAL BLEEDING [None]
  - GINGIVAL EROSION [None]
  - GINGIVITIS [None]
  - GYNAECOMASTIA [None]
  - HAEMATURIA [None]
  - HOT FLUSH [None]
  - INFECTION [None]
  - INJURY [None]
  - INSOMNIA [None]
  - INTESTINAL FUNCTIONAL DISORDER [None]
  - MENTAL DISORDER [None]
  - NAUSEA [None]
  - NECK PAIN [None]
  - NEPHROLITHIASIS [None]
  - NIGHT SWEATS [None]
  - NOCTURIA [None]
  - OSTEONECROSIS [None]
  - PAIN [None]
  - PAIN IN JAW [None]
  - PELVIC PAIN [None]
  - PERIODONTITIS [None]
  - PROSTATE CANCER METASTATIC [None]
  - PROSTATIC SPECIFIC ANTIGEN INCREASED [None]
  - SWELLING [None]
  - TOOTH EXTRACTION [None]
  - TOOTH FRACTURE [None]
